FAERS Safety Report 6986641-6 (Version None)
Quarter: 2010Q3

REPORT INFORMATION
  Report Type: 
  Country: None (occurrence: None)
  Receive Date: 20100915
  Receipt Date: 20090818
  Transmission Date: 20110219
  Serious: Yes (Other)
  Sender: FDA-Public Use
  Company Number: US-WYE-H10258009

PATIENT
  Sex: Female

DRUGS (2)
  1. PRISTIQ [Suspect]
     Indication: MAJOR DEPRESSION
     Route: 048
     Dates: start: 20090401, end: 20090702
  2. VITAMIN TAB [Concomitant]

REACTIONS (2)
  - CONVULSION [None]
  - DRUG EXPOSURE VIA BREAST MILK [None]
